FAERS Safety Report 10485099 (Version 3)
Quarter: 2015Q1

REPORT INFORMATION
  Report Type: Report from Study
  Country: FR (occurrence: FR)
  Receive Date: 20140930
  Receipt Date: 20150331
  Transmission Date: 20150720
  Serious: Yes (Hospitalization)
  Sender: FDA-Public Use
  Company Number: PHHO2014FR012973

PATIENT
  Age: 54 Year
  Sex: Male

DRUGS (8)
  1. MYFORTIC [Concomitant]
     Active Substance: MYCOPHENOLATE SODIUM
     Indication: LIVER TRANSPLANT
     Dosage: 720 MG, BID
     Route: 065
     Dates: start: 20140829, end: 20140924
  2. INEXIUM//ESOMEPRAZOLE SODIUM [Concomitant]
     Active Substance: ESOMEPRAZOLE
     Indication: PROPHYLAXIS
     Dosage: 40 MG, UNK
     Route: 065
     Dates: end: 20140924
  3. EVEROLIMUS [Suspect]
     Active Substance: EVEROLIMUS
     Indication: LIVER TRANSPLANT
     Dosage: 0.5 MG, BID
     Route: 048
     Dates: start: 20140925
  4. MYFORTIC [Concomitant]
     Active Substance: MYCOPHENOLATE SODIUM
     Route: 065
     Dates: start: 20141010
  5. CORTANCYL [Concomitant]
     Active Substance: PREDNISONE
     Indication: LIVER TRANSPLANT
     Dosage: 12.5 MG, UNK
     Route: 065
     Dates: start: 20140820, end: 20140924
  6. AMLOR [Concomitant]
     Active Substance: AMLODIPINE BESYLATE
     Indication: HYPERTENSION
     Dosage: 10 MG, UNK
     Route: 065
     Dates: end: 20140924
  7. ACUPAN [Concomitant]
     Active Substance: NEFOPAM HYDROCHLORIDE
     Indication: PAIN PROPHYLAXIS
     Route: 065
  8. PROGRAF [Suspect]
     Active Substance: TACROLIMUS\TACROLIMUS ANHYDROUS
     Indication: LIVER TRANSPLANT
     Dosage: 4 MG, BID
     Route: 065
     Dates: start: 20140825

REACTIONS (2)
  - Asthenia [Recovered/Resolved]
  - Herpes oesophagitis [Recovered/Resolved]

NARRATIVE: CASE EVENT DATE: 201409
